FAERS Safety Report 8510264-0 (Version None)
Quarter: 2012Q3

REPORT INFORMATION
  Report Type: 
  Country: None (occurrence: None)
  Receive Date: 20120713
  Receipt Date: 20120705
  Transmission Date: 20120928
  Serious: Yes (Other)
  Sender: FDA-Public Use
  Company Number: US-BAXTER-2012BH003724

PATIENT
  Sex: Female
  Weight: 56.4 kg

DRUGS (6)
  1. ACETAMINOPHEN [Concomitant]
     Indication: PREMEDICATION
     Route: 048
     Dates: start: 20111013
  2. DIPHENHYDRAMINE HCL [Concomitant]
     Indication: PREMEDICATION
     Route: 048
     Dates: start: 20111013
  3. MOMETASONE FUROATE [Concomitant]
     Indication: ASTHMA
  4. GAMMAGARD LIQUID [Suspect]
  5. ALPRAZOLAM [Concomitant]
     Indication: SLEEP DISORDER
     Route: 048
  6. GAMMAGARD LIQUID [Suspect]
     Route: 042
     Dates: start: 20111021, end: 20120113

REACTIONS (6)
  - INFUSION SITE ERYTHEMA [None]
  - VENOUS THROMBOSIS [None]
  - INFUSION SITE IRRITATION [None]
  - PAIN IN EXTREMITY [None]
  - INFUSION SITE SWELLING [None]
  - INFUSION SITE DISCOMFORT [None]
